FAERS Safety Report 7637678-5 (Version None)
Quarter: 2011Q3

REPORT INFORMATION
  Report Type: 
  Country: None (occurrence: None)
  Receive Date: 20110726
  Receipt Date: 20110525
  Transmission Date: 20111222
  Serious: Yes (Other)
  Sender: FDA-Public Use
  Company Number: US-AMGEN-USASP2011027670

PATIENT
  Age: 39 Year
  Sex: Male

DRUGS (1)
  1. EPOGEN [Suspect]
     Dosage: 20000 IU, 3 TIMES/WK
     Dates: start: 20110501

REACTIONS (1)
  - DRUG INEFFECTIVE [None]
